FAERS Safety Report 8534046-9 (Version None)
Quarter: 2012Q3

REPORT INFORMATION
  Report Type: 
  Country: None (occurrence: None)
  Receive Date: 20120724
  Receipt Date: 20120717
  Transmission Date: 20120928
  Serious: No
  Sender: FDA-Public Use
  Company Number: US-B.I. PHARMACEUTICALS,INC./RIDGEFIELD-2012-BP-15924BP

PATIENT
  Sex: Female
  Weight: 109 kg

DRUGS (4)
  1. LISINOPRIL [Concomitant]
     Indication: HYPERTENSION
     Dosage: 20 MG
     Route: 048
     Dates: start: 19920101
  2. NICOTINE [Concomitant]
     Indication: NICOTINE DEPENDENCE
     Dosage: 21 MG
     Route: 061
     Dates: start: 20120601
  3. SPIRIVA [Suspect]
     Indication: CHRONIC OBSTRUCTIVE PULMONARY DISEASE
     Dosage: 18 MCG
     Route: 055
     Dates: start: 20120706
  4. SPIRIVA [Suspect]
     Route: 048
     Dates: start: 20120717, end: 20120717

REACTIONS (3)
  - ARTHRALGIA [None]
  - PAIN IN EXTREMITY [None]
  - INCORRECT ROUTE OF DRUG ADMINISTRATION [None]
